FAERS Safety Report 7619774-1 (Version None)
Quarter: 2011Q3

REPORT INFORMATION
  Report Type: 
  Country: None (occurrence: None)
  Receive Date: 20110719
  Receipt Date: 20110713
  Transmission Date: 20111222
  Serious: Yes (Disabling)
  Sender: FDA-Public Use
  Company Number: GB-TEVA-290775ISR

PATIENT
  Sex: Female

DRUGS (1)
  1. OXALIPLATIN [Suspect]

REACTIONS (1)
  - PAIN IN JAW [None]
